FAERS Safety Report 9667003 (Version 3)
Quarter: 2013Q4

REPORT INFORMATION
  Report Type: Spontaneous
  Country: NO (occurrence: NO)
  Receive Date: 20131104
  Receipt Date: 20131115
  Transmission Date: 20140711
  Serious: Yes (Hospitalization)
  Sender: FDA-Public Use
  Company Number: NO-MERCK-1302NOR000099

PATIENT
  Age: 47 Year
  Sex: Male

DRUGS (4)
  1. REMERON [Suspect]
     Indication: DEPRESSION
     Dosage: 15 MG AND 30 MG
     Route: 048
     Dates: start: 200301, end: 201202
  2. REMERON [Suspect]
     Indication: SLEEP DISORDER
     Dosage: 30 MG
     Route: 048
     Dates: start: 2012, end: 201212
  3. REMERON [Suspect]
     Dosage: 15 MG AND 30 MG
     Route: 048
     Dates: end: 20130122
  4. IMOVANE [Concomitant]
     Indication: INSOMNIA
     Dosage: 7.5 MG, UNK
     Route: 048

REACTIONS (4)
  - Akathisia [Not Recovered/Not Resolved]
  - Insomnia [Not Recovered/Not Resolved]
  - Withdrawal syndrome [Not Recovered/Not Resolved]
  - Exposure to toxic agent [Unknown]
